FAERS Safety Report 5941009-6 (Version None)
Quarter: 2008Q4

REPORT INFORMATION
  Report Type: 
  Country: None (occurrence: None)
  Receive Date: 20081104
  Receipt Date: 20081029
  Transmission Date: 20090506
  Serious: Yes (Other)
  Sender: FDA-Public Use
  Company Number: PHBS2008DE06165

PATIENT
  Age: 47 Year
  Sex: Female
  Weight: 37 kg

DRUGS (2)
  1. SANDOSTATIN [Suspect]
     Indication: PLEURAL EFFUSION
     Dosage: 100 MG, TID
     Route: 058
  2. SPIRONOLACTONE [Concomitant]
     Indication: ABDOMINAL DISCOMFORT
     Route: 048

REACTIONS (6)
  - ABDOMINAL DISTENSION [None]
  - ASCITES [None]
  - DECREASED APPETITE [None]
  - FLATULENCE [None]
  - OFF LABEL USE [None]
  - VOMITING [None]
